FAERS Safety Report 11483154 (Version 1)
Quarter: 2015Q3

REPORT INFORMATION
  Report Type: Spontaneous
  Country: US (occurrence: US)
  Receive Date: 20150903
  Receipt Date: 20150903
  Transmission Date: 20151125
  Serious: No
  Sender: FDA-Public Use
  Company Number: US-ELI_LILLY_AND_COMPANY-US201205009425

PATIENT
  Age: 48 Year
  Sex: Male

DRUGS (2)
  1. ZYBAN [Concomitant]
     Active Substance: BUPROPION HYDROCHLORIDE
     Indication: SMOKING CESSATION THERAPY
     Dosage: UNK, UNKNOWN
  2. CYMBALTA [Suspect]
     Active Substance: DULOXETINE HYDROCHLORIDE
     Indication: MAJOR DEPRESSION
     Dosage: 120 MG, EACH MORNING
     Dates: end: 20120523

REACTIONS (3)
  - Adverse event [Recovered/Resolved]
  - Depression [Recovered/Resolved]
  - Paraesthesia [Recovered/Resolved]
